FAERS Safety Report 10598042 (Version 1)
Quarter: 2014Q4

REPORT INFORMATION
  Report Type: Spontaneous
  Country: AU (occurrence: AU)
  Receive Date: 20141121
  Receipt Date: 20141121
  Transmission Date: 20150529
  Serious: Yes (Disabling, Other)
  Sender: FDA-Public Use
  Company Number: AU-PFIZER INC-2014318346

PATIENT
  Age: 80 Year
  Sex: Female

DRUGS (8)
  1. LYRICA [Suspect]
     Active Substance: PREGABALIN
     Indication: FIBROMYALGIA
     Dosage: 25 MG, UNK
     Dates: start: 201410
  2. LYRICA [Suspect]
     Active Substance: PREGABALIN
     Dosage: 50 MG, UNK
  3. LYRICA [Suspect]
     Active Substance: PREGABALIN
     Dosage: 75 MG, UNK
  4. LEXAPRO [Concomitant]
     Active Substance: ESCITALOPRAM OXALATE
  5. MURELAX [Concomitant]
     Indication: HEADACHE
  6. AVAPRO HCT [Concomitant]
     Active Substance: HYDROCHLOROTHIAZIDE\IRBESARTAN
  7. ZANIDIP [Concomitant]
     Active Substance: LERCANIDIPINE HYDROCHLORIDE
  8. SALOFALK [Concomitant]
     Active Substance: MESALAMINE

REACTIONS (8)
  - Sciatica [Unknown]
  - Hypoaesthesia [Unknown]
  - Dysuria [Unknown]
  - Fluid retention [Unknown]
  - Back pain [Unknown]
  - Joint swelling [Unknown]
  - Urinary retention [Unknown]
  - Paraesthesia [Unknown]

NARRATIVE: CASE EVENT DATE: 201411
